FAERS Safety Report 9921533 (Version 1)
Quarter: 2014Q1

REPORT INFORMATION
  Report Type: Spontaneous
  Country: US (occurrence: US)
  Receive Date: 20140225
  Receipt Date: 20140225
  Transmission Date: 20141002
  Serious: No
  Sender: FDA-Public Use
  Company Number: US-PFIZER INC-2014050923

PATIENT
  Age: 72 Year
  Sex: Male

DRUGS (6)
  1. SUTENT [Suspect]
     Indication: RENAL CANCER
     Dosage: UNK MG, UNK
     Dates: start: 20140128
  2. TYLENOL [Concomitant]
     Dosage: UNK
  3. ATENOL [Concomitant]
     Dosage: UNK
  4. XARELTO [Concomitant]
     Dosage: UNK
  5. FLOMAX [Concomitant]
  6. CALCIUM + VIT D [Concomitant]
     Dosage: UNK

REACTIONS (1)
  - Fatigue [Unknown]
